FAERS Safety Report 5847296-7 (Version None)
Quarter: 2008Q3

REPORT INFORMATION
  Report Type: 
  Country: None (occurrence: None)
  Receive Date: 20080815
  Receipt Date: 20080806
  Transmission Date: 20090109
  Serious: Yes (Hospitalization)
  Sender: FDA-Public Use
  Company Number: US-ABBOTT-08P-163-0469038-00

PATIENT
  Age: 8 Year
  Sex: Male

DRUGS (2)
  1. SYNTHROID [Suspect]
     Indication: THYROID DISORDER
     Route: 048
     Dates: start: 20070801
  2. ACETYLSALICYLIC ACID SRT [Suspect]
     Indication: THROMBOSIS
     Route: 048
     Dates: start: 20030101

REACTIONS (2)
  - GASTRITIS [None]
  - GASTROINTESTINAL ULCER [None]
